FAERS Safety Report 25178465 (Version 1)
Quarter: 2025Q2

REPORT INFORMATION
  Report Type: Spontaneous
  Country: US (occurrence: US)
  Receive Date: 20250409
  Receipt Date: 20250409
  Transmission Date: 20250716
  Serious: Yes (Other)
  Sender: ARDELYX
  Company Number: US-ARDELYX-2025ARDX000394

PATIENT

DRUGS (3)
  1. IBSRELA [Suspect]
     Active Substance: TENAPANOR HYDROCHLORIDE
     Indication: Product used for unknown indication
     Route: 065
     Dates: start: 202412
  2. IBSRELA [Suspect]
     Active Substance: TENAPANOR HYDROCHLORIDE
     Route: 065
  3. IBSRELA [Suspect]
     Active Substance: TENAPANOR HYDROCHLORIDE
     Dosage: 50 MILLIGRAM, TIW (3 IN WEEK)
     Route: 065
     Dates: end: 20250122

REACTIONS (5)
  - Rectal haemorrhage [Recovered/Resolved]
  - Dehydration [Recovered/Resolved]
  - Anal fissure [Unknown]
  - Condition aggravated [Recovered/Resolved]
  - Diarrhoea [Recovered/Resolved]
